FAERS Safety Report 16236830 (Version 1)
Quarter: 2019Q2

REPORT INFORMATION
  Report Type: Other
  Country: GB (occurrence: GB)
  Receive Date: 20190425
  Receipt Date: 20190425
  Transmission Date: 20190711
  Serious: Yes (Hospitalization, Other)
  Sender: FDA-Public Use
  Company Number: GB-ASTELLAS-2019US017891

PATIENT
  Age: 68 Year
  Sex: Female
  Weight: 64 kg

DRUGS (4)
  1. SOLIFENACIN [Suspect]
     Active Substance: SOLIFENACIN
     Indication: POLLAKIURIA
     Route: 048
  2. ROSUVASTATIN. [Concomitant]
     Active Substance: ROSUVASTATIN
     Indication: PRODUCT USED FOR UNKNOWN INDICATION
     Dosage: UNK, UNKNOWN FREQ.
     Route: 065
  3. OMEPRAZOLE. [Concomitant]
     Active Substance: OMEPRAZOLE
     Indication: PRODUCT USED FOR UNKNOWN INDICATION
     Dosage: UNK UNK, UNKNOWN FREQ.
     Route: 065
  4. ASPIRIN. [Concomitant]
     Active Substance: ASPIRIN
     Indication: PRODUCT USED FOR UNKNOWN INDICATION
     Dosage: UNK, UNKNOWN FREQ.
     Route: 065

REACTIONS (4)
  - Hypomagnesaemia [Unknown]
  - Torsade de pointes [Unknown]
  - Electrocardiogram QT prolonged [Recovering/Resolving]
  - Hypokalaemia [Unknown]
